FAERS Safety Report 8949892 (Version 4)
Quarter: 2014Q1

REPORT INFORMATION
  Report Type: Spontaneous
  Country: US (occurrence: US)
  Receive Date: 20121206
  Receipt Date: 20140207
  Transmission Date: 20141002
  Serious: Yes (Hospitalization, Other)
  Sender: FDA-Public Use
  Company Number: US-PFIZER INC-2012305931

PATIENT
  Sex: Female
  Weight: 77.1 kg

DRUGS (15)
  1. ARTHROTEC [Suspect]
     Indication: ARTHRITIS
     Dosage: 75/200 MG/MCG, 2X/DAY
  2. LYRICA [Suspect]
     Indication: NERVE INJURY
     Dosage: 150 MG, 2X/DAY
     Route: 048
     Dates: start: 201103
  3. LYRICA [Suspect]
     Indication: RESTLESS LEGS SYNDROME
     Dosage: 150 MG, 2X/DAY
     Dates: start: 201104
  4. LYRICA [Suspect]
     Indication: NERVE INJURY
  5. LYRICA [Suspect]
     Indication: NERVE INJURY
  6. ASTELIN [Concomitant]
     Dosage: UNK
     Route: 045
  7. FLONASE [Concomitant]
     Dosage: UNK
     Route: 045
  8. BUMEX [Concomitant]
     Indication: FLUID RETENTION
     Dosage: UNK
  9. ZANTAC [Concomitant]
     Dosage: UNK
  10. OMEPRAZOLE [Concomitant]
     Dosage: UNK
  11. ADDERALL [Concomitant]
     Dosage: UNK
  12. XANAX [Concomitant]
     Dosage: UNK
  13. ADVAIR [Concomitant]
     Indication: ASTHMA
     Dosage: UNK
  14. PROVENTIL [Concomitant]
     Indication: ASTHMA
     Dosage: UNK
  15. SYNTHROID [Concomitant]
     Indication: HYPOTHYROIDISM
     Dosage: UNK

REACTIONS (4)
  - Back disorder [Unknown]
  - Pain [Not Recovered/Not Resolved]
  - Thoracic vertebral fracture [Unknown]
  - Intervertebral disc disorder [Unknown]
